FAERS Safety Report 10088250 (Version 2)
Quarter: 2014Q2

REPORT INFORMATION
  Report Type: Spontaneous
  Country: JP (occurrence: JP)
  Receive Date: 20140421
  Receipt Date: 20140603
  Transmission Date: 20141212
  Serious: Yes (Hospitalization)
  Sender: FDA-Public Use
  Company Number: JP-ROCHE-1385142

PATIENT
  Age: 96 Year
  Sex: Female

DRUGS (9)
  1. BONVIVA [Suspect]
     Indication: PRODUCT USED FOR UNKNOWN INDICATION
     Dosage: DOSAGE IS UNCERTAIN.
     Route: 042
  2. NEUROTROPIN (JAPAN) [Concomitant]
     Dosage: DOSAGE IS UNCERTAIN.
     Route: 065
  3. SELBEX [Concomitant]
     Dosage: DOSAGE IS UNCERTAIN.
     Route: 065
  4. HERBESSER [Concomitant]
     Dosage: DOSAGE IS UNCERTAIN.
     Route: 065
  5. EDIROL [Concomitant]
     Dosage: DOSAGE IS UNCERTAIN.
     Route: 048
  6. ENALAPRIL [Concomitant]
     Dosage: DOSAGE IS UNCERTAIN.
     Route: 065
  7. FAMOTIDINE [Concomitant]
     Dosage: DOSAGE IS UNCERTAIN.
     Route: 065
  8. FUROSEMIDE [Concomitant]
     Dosage: DOSAGE IS UNCERTAIN.
     Route: 065
  9. LAXOBERON [Concomitant]
     Dosage: DOSAGE IS UNCERTAIN.
     Route: 065

REACTIONS (2)
  - Fall [Unknown]
  - Femur fracture [Unknown]
